FAERS Safety Report 18233915 (Version 2)
Quarter: 2020Q4

REPORT INFORMATION
  Report Type: Spontaneous
  Country: JP (occurrence: JP)
  Receive Date: 20200904
  Receipt Date: 20201009
  Transmission Date: 20210113
  Serious: Yes (Hospitalization, Other)
  Sender: FDA-Public Use
  Company Number: JP-PFIZER INC-2020341448

PATIENT
  Age: 81 Year
  Sex: Female
  Weight: 58.5 kg

DRUGS (2)
  1. XELJANZ [Suspect]
     Active Substance: TOFACITINIB CITRATE
     Indication: RHEUMATOID ARTHRITIS
     Dosage: 5 MG, 2X/DAY
     Route: 048
     Dates: start: 202003
  2. PREDONINE [Suspect]
     Active Substance: PREDNISOLONE
     Indication: RHEUMATOID ARTHRITIS
     Dosage: 5 MG, 1X/DAY
     Route: 048
     Dates: start: 2012

REACTIONS (7)
  - Blood lactate dehydrogenase increased [Recovered/Resolved]
  - Blood albumin decreased [Recovered/Resolved]
  - Protein total decreased [Recovered/Resolved]
  - Haemoglobin decreased [Recovered/Resolved]
  - Osteonecrosis [Recovering/Resolving]
  - Blood glucose increased [Unknown]
  - Blood creatine phosphokinase decreased [Recovered/Resolved]

NARRATIVE: CASE EVENT DATE: 20200603
